FAERS Safety Report 6928955-1 (Version None)
Quarter: 2010Q3

REPORT INFORMATION
  Report Type: 
  Country: None (occurrence: None)
  Receive Date: 20100817
  Receipt Date: 20100805
  Transmission Date: 20110219
  Serious: Yes (Other)
  Sender: FDA-Public Use
  Company Number: US-PFIZER INC-2010099055

PATIENT
  Age: 56 Year
  Sex: Male
  Weight: 83.9 kg

DRUGS (3)
  1. CHANTIX [Suspect]
     Indication: SMOKING CESSATION THERAPY
     Dosage: 0.5 MG, 1X/DAY
     Route: 048
     Dates: start: 20100701, end: 20100101
  2. CHANTIX [Suspect]
     Dosage: UNK
     Route: 048
     Dates: start: 20100101
  3. XANAX [Concomitant]
     Indication: PANIC ATTACK
     Dosage: 0.25 MG, 1X/DAY
     Route: 048

REACTIONS (3)
  - ANXIETY [None]
  - NERVOUSNESS [None]
  - TREMOR [None]
